FAERS Safety Report 6455959-8 (Version None)
Quarter: 2009Q4

REPORT INFORMATION
  Report Type: 
  Country: None (occurrence: None)
  Receive Date: 20091119
  Receipt Date: 20091109
  Transmission Date: 20100525
  Serious: Yes (Other)
  Sender: FDA-Public Use
  Company Number: 1000010201

PATIENT
  Sex: Female

DRUGS (3)
  1. ESCITALOPRAM [Suspect]
     Indication: DEPRESSION
     Dosage: ORAL; 30 (30 , 1 IN 1 D), ORAL
     Route: 048
     Dates: end: 20080101
  2. ESCITALOPRAM [Suspect]
     Indication: DEPRESSION
     Dosage: ORAL; 30 (30 , 1 IN 1 D), ORAL
     Route: 048
     Dates: start: 20080101
  3. ATACAND [Concomitant]

REACTIONS (4)
  - HEAD TITUBATION [None]
  - OVERDOSE [None]
  - RESTLESSNESS [None]
  - TREMOR [None]
